FAERS Safety Report 7940708-4 (Version None)
Quarter: 2011Q4

REPORT INFORMATION
  Report Type: 
  Country: None (occurrence: None)
  Receive Date: 20111114
  Receipt Date: 20110718
  Transmission Date: 20120403
  Serious: Yes (Other)
  Sender: FDA-Public Use
  Company Number: 2011S1000463

PATIENT
  Sex: Male

DRUGS (1)
  1. CUBICIN [Suspect]
     Indication: STAPHYLOCOCCAL INFECTION

REACTIONS (6)
  - PARANOIA [None]
  - FATIGUE [None]
  - MUSCULAR WEAKNESS [None]
  - HEADACHE [None]
  - INSOMNIA [None]
  - DIZZINESS [None]
